FAERS Safety Report 6231858-1 (Version None)
Quarter: 2009Q2

REPORT INFORMATION
  Report Type: 
  Country: None (occurrence: None)
  Receive Date: 20090612
  Receipt Date: 20090612
  Transmission Date: 20091009
  Serious: Yes (Other)
  Sender: FDA-Public Use
  Company Number: None

PATIENT
  Age: 76 Year
  Sex: Female
  Weight: 56.6996 kg

DRUGS (1)
  1. HYDROXYCHLOROQUINE 200 MG UNKNOWN FORT MEADE PHARMACY [Suspect]
     Indication: HYPERSENSITIVITY
     Dosage: 400 MG DAILY PO
     Route: 048
     Dates: start: 20090301, end: 20090609

REACTIONS (3)
  - BURNING SENSATION [None]
  - RASH ERYTHEMATOUS [None]
  - RASH PRURITIC [None]
